FAERS Safety Report 9768006 (Version 1)
Quarter: 2013Q4

REPORT INFORMATION
  Report Type: Spontaneous
  Country: US (occurrence: None)
  Receive Date: 20131217
  Receipt Date: 20131217
  Transmission Date: 20140711
  Serious: Yes (Death)
  Sender: FDA-Public Use
  Company Number: 2012BAX018014

PATIENT
  Age: 65 Year
  Sex: Male
  Weight: 80 kg

DRUGS (2)
  1. GAMMAGARD LIQUID (IMMUNOGLOBULIN, NORMAL HUMAN) (SOLUTION FOR INFUSI [Suspect]
     Indication: AMYOTROPHIC LATERAL SCLEROSIS
     Dosage: (1 IN 1 M) , INTRAVENOUS?
  2. GAMMAGARD LIQUID (IMMUNOGLOBULIN, NORMAL HUMAN) (SOLUTION FOR INFUSI [Suspect]
     Indication: OFF LABEL USE
     Dosage: (1 IN 1 M) , INTRAVENOUS?

REACTIONS (1)
  - Cardiac arrest [None]
